FAERS Safety Report 18827039 (Version 1)
Quarter: 2021Q1

REPORT INFORMATION
  Report Type: Spontaneous
  Country: US (occurrence: US)
  Receive Date: 20210201
  Receipt Date: 20210201
  Transmission Date: 20210419
  Serious: No
  Sender: FDA-Public Use
  Company Number: US-ABBVIE-20K-163-3443777-00

PATIENT
  Sex: Female

DRUGS (1)
  1. HUMIRA [Suspect]
     Active Substance: ADALIMUMAB
     Indication: RHEUMATOID ARTHRITIS
     Route: 058

REACTIONS (8)
  - Arthralgia [Not Recovered/Not Resolved]
  - Dysuria [Recovered/Resolved]
  - Injection site extravasation [Unknown]
  - Injection site discomfort [Unknown]
  - Tooth infection [Unknown]
  - Drug ineffective [Unknown]
  - Product storage error [Unknown]
  - Urinary tract discomfort [Recovered/Resolved]

NARRATIVE: CASE EVENT DATE: 2020
